FAERS Safety Report 7828260-5 (Version None)
Quarter: 2011Q4

REPORT INFORMATION
  Report Type: 
  Country: None (occurrence: None)
  Receive Date: 20111020
  Receipt Date: 20111018
  Transmission Date: 20120403
  Serious: No
  Sender: FDA-Public Use
  Company Number: US-B.I. PHARMACEUTICALS,INC./RIDGEFIELD-2011-BP-24525BP

PATIENT
  Sex: Male

DRUGS (6)
  1. TAMSULOSIN HCL [Concomitant]
     Indication: PROSTATIC DISORDER
  2. ZINC [Concomitant]
     Indication: SUPPLEMENTATION THERAPY
  3. ZYLOPRIM [Concomitant]
     Indication: GOUT
  4. PRAVASTATIN [Concomitant]
     Indication: BLOOD CHOLESTEROL INCREASED
  5. PRADAXA [Suspect]
     Indication: ATRIAL FIBRILLATION
     Dosage: 300 MG
     Route: 048
     Dates: start: 20110921
  6. ACIDOPHILUS [Concomitant]
     Indication: SUPPLEMENTATION THERAPY

REACTIONS (1)
  - FATIGUE [None]
